FAERS Safety Report 9742575 (Version 2)
Quarter: 2015Q3

REPORT INFORMATION
  Report Type: Spontaneous
  Country: US (occurrence: US)
  Receive Date: 20131210
  Receipt Date: 20150804
  Transmission Date: 20151125
  Serious: No
  Sender: FDA-Public Use
  Company Number: US-GILEAD-2009-0024503

PATIENT
  Age: 62 Year
  Sex: Female
  Weight: 90.26 kg

DRUGS (7)
  1. ALPRAZOLAM. [Concomitant]
     Active Substance: ALPRAZOLAM
  2. LETAIRIS [Suspect]
     Active Substance: AMBRISENTAN
     Indication: PULMONARY ARTERIAL HYPERTENSION
     Route: 048
     Dates: start: 20090813
  3. AMBIEN [Concomitant]
     Active Substance: ZOLPIDEM TARTRATE
  4. METFORMIN HCL [Concomitant]
     Active Substance: METFORMIN HYDROCHLORIDE
  5. DIOVAN HCT [Concomitant]
     Active Substance: HYDROCHLOROTHIAZIDE\VALSARTAN
  6. CARVEDILOL. [Concomitant]
     Active Substance: CARVEDILOL
  7. VICODIN 5 [Concomitant]

REACTIONS (1)
  - Cough [Unknown]
